FAERS Safety Report 24893303 (Version 1)
Quarter: 2025Q1

REPORT INFORMATION
  Report Type: Spontaneous
  Country: FR (occurrence: FR)
  Receive Date: 20250128
  Receipt Date: 20250128
  Transmission Date: 20250408
  Serious: Yes (Other)
  Sender: ABBVIE
  Company Number: None

PATIENT
  Age: 85 Year
  Sex: Female

DRUGS (2)
  1. CITALOPRAM HYDROCHLORIDE [Interacting]
     Active Substance: CITALOPRAM HYDROCHLORIDE
     Indication: Mixed anxiety and depressive disorder
     Dosage: STRENGTH: 40MG/ML?DOSE- 20 MILLIGRAM
     Route: 048
  2. ELIQUIS [Interacting]
     Active Substance: APIXABAN
     Indication: Product used for unknown indication
     Dosage: STRENGTH: 5MG
     Route: 048

REACTIONS (2)
  - Drug interaction [Not Recovered/Not Resolved]
  - Haematoma [Not Recovered/Not Resolved]
